FAERS Safety Report 6104478-7 (Version None)
Quarter: 2009Q1

REPORT INFORMATION
  Report Type: 
  Country: None (occurrence: None)
  Receive Date: 20090305
  Receipt Date: 20090224
  Transmission Date: 20090719
  Serious: Yes (Disabling, Other)
  Sender: FDA-Public Use
  Company Number: US-WYE-H06590208

PATIENT
  Sex: Female
  Weight: 81.72 kg

DRUGS (7)
  1. EFFEXOR XR [Suspect]
     Indication: MYALGIA
     Route: 048
     Dates: end: 20080501
  2. EFFEXOR XR [Suspect]
     Dosage: TAPERED OFF
     Route: 048
     Dates: start: 20080501, end: 20080101
  3. CRESTOR [Concomitant]
     Dosage: 5 MG, FREQUENCY UNKNOWN
     Route: 048
  4. TOPROL-XL [Concomitant]
     Indication: HYPERTENSION
     Route: 048
  5. BENICAR HCT [Concomitant]
     Indication: HYPERTENSION
     Dosage: 40/12.5 DAILY
     Route: 048
  6. SYNTHROID [Concomitant]
     Indication: HYPOTHYROIDISM
     Dosage: 75 MCG, FREQUENCY UNKNOWN
  7. NASONEX [Concomitant]
     Indication: RHINITIS ALLERGIC
     Dosage: 2 SPRAYS DAILY
     Route: 045

REACTIONS (18)
  - ANXIETY [None]
  - BURNING SENSATION [None]
  - DRUG WITHDRAWAL SYNDROME [None]
  - FATIGUE [None]
  - INSOMNIA [None]
  - NERVOUSNESS [None]
  - NEURODERMATITIS [None]
  - NONSPECIFIC REACTION [None]
  - PAIN [None]
  - PANIC ATTACK [None]
  - PRURITUS [None]
  - RASH ERYTHEMATOUS [None]
  - RASH VESICULAR [None]
  - RESTLESSNESS [None]
  - SCAR [None]
  - SKIN LESION [None]
  - SKIN ULCER [None]
  - UNEVALUABLE EVENT [None]
